FAERS Safety Report 9959413 (Version 1)
Quarter: 2014Q1

REPORT INFORMATION
  Report Type: Report from Study
  Country: US (occurrence: US)
  Receive Date: 20140305
  Receipt Date: 20140305
  Transmission Date: 20141002
  Serious: No
  Sender: FDA-Public Use
  Company Number: US-ABBVIE-13P-163-1105668-00

PATIENT
  Age: 37 Year
  Sex: Female

DRUGS (3)
  1. HUMIRA [Suspect]
     Indication: CROHN^S DISEASE
     Dates: start: 20130502
  2. PENTASA [Concomitant]
     Indication: CROHN^S DISEASE
  3. 6 MP [Concomitant]
     Indication: CROHN^S DISEASE
     Dosage: (UNSURE DOSE) 1.5 TABLETS DAILY

REACTIONS (3)
  - Injection site pain [Recovered/Resolved]
  - Injection site erythema [Unknown]
  - Injection site pruritus [Unknown]
